FAERS Safety Report 24054706 (Version 1)
Quarter: 2024Q3

REPORT INFORMATION
  Report Type: Spontaneous
  Country: US (occurrence: US)
  Receive Date: 20240705
  Receipt Date: 20240705
  Transmission Date: 20241016
  Serious: Yes (Other)
  Sender: AMGEN
  Company Number: US-AMGEN-USASP2024131811

PATIENT

DRUGS (3)
  1. TRASTUZUMAB [Suspect]
     Active Substance: TRASTUZUMAB
     Indication: Colorectal cancer
     Dosage: UNK
     Route: 065
  2. TUCATINIB [Concomitant]
     Active Substance: TUCATINIB
     Indication: Colorectal cancer
     Dosage: UNK
     Route: 065
  3. NERATINIB [Concomitant]
     Active Substance: NERATINIB
     Indication: Colorectal cancer
     Dosage: UNK
     Route: 065

REACTIONS (3)
  - Colorectal cancer metastatic [Unknown]
  - Treatment failure [Unknown]
  - Off label use [Unknown]
